FAERS Safety Report 24671762 (Version 2)
Quarter: 2024Q4

REPORT INFORMATION
  Report Type: Spontaneous
  Country: ES (occurrence: ES)
  Receive Date: 20241127
  Receipt Date: 20241206
  Transmission Date: 20250114
  Serious: No
  Sender: BAUSCH AND LOMB
  Company Number: ES-AMGEN-ESPSP2023159914

PATIENT
  Age: 51 Year
  Sex: Female

DRUGS (20)
  1. DIMETHYL FUMARATE [Suspect]
     Active Substance: DIMETHYL FUMARATE
     Indication: Psoriatic arthropathy
     Dosage: UNK
     Route: 065
  2. DIMETHYL FUMARATE [Suspect]
     Active Substance: DIMETHYL FUMARATE
     Indication: Psoriasis
  3. AZATHIOPRINE [Suspect]
     Active Substance: AZATHIOPRINE
     Indication: Psoriatic arthropathy
     Route: 065
  4. AZATHIOPRINE [Suspect]
     Active Substance: AZATHIOPRINE
     Indication: Psoriasis
  5. ADALIMUMAB [Suspect]
     Active Substance: ADALIMUMAB
     Indication: Psoriatic arthropathy
     Dosage: UNK
     Route: 065
  6. ADALIMUMAB [Suspect]
     Active Substance: ADALIMUMAB
     Indication: Psoriasis
  7. APREMILAST [Suspect]
     Active Substance: APREMILAST
     Indication: Psoriatic arthropathy
     Dosage: UNK
     Route: 065
  8. APREMILAST [Suspect]
     Active Substance: APREMILAST
     Indication: Psoriasis
  9. ETANERCEPT [Suspect]
     Active Substance: ETANERCEPT
     Indication: Psoriatic arthropathy
     Dosage: UNK
     Route: 065
  10. ETANERCEPT [Suspect]
     Active Substance: ETANERCEPT
     Indication: Psoriasis
  11. CYCLOSPORINE [Suspect]
     Active Substance: CYCLOSPORINE
     Indication: Psoriatic arthropathy
     Dosage: UNK
     Route: 065
  12. CYCLOSPORINE [Suspect]
     Active Substance: CYCLOSPORINE
     Indication: Psoriasis
  13. USTEKINUMAB [Suspect]
     Active Substance: USTEKINUMAB
     Indication: Psoriatic arthropathy
     Route: 065
  14. USTEKINUMAB [Suspect]
     Active Substance: USTEKINUMAB
     Indication: Psoriasis
  15. SECUKINUMAB [Suspect]
     Active Substance: SECUKINUMAB
     Indication: Psoriatic arthropathy
     Dosage: UNK
     Route: 065
  16. SECUKINUMAB [Suspect]
     Active Substance: SECUKINUMAB
     Indication: Psoriasis
  17. MYCOPHENOLATE MOFETIL [Suspect]
     Active Substance: MYCOPHENOLATE MOFETIL
     Indication: Psoriatic arthropathy
     Dosage: UNK
     Route: 065
  18. MYCOPHENOLATE MOFETIL [Suspect]
     Active Substance: MYCOPHENOLATE MOFETIL
     Indication: Psoriasis
  19. METHOTREXATE [Suspect]
     Active Substance: METHOTREXATE
     Indication: Psoriatic arthropathy
     Route: 065
  20. METHOTREXATE [Suspect]
     Active Substance: METHOTREXATE
     Indication: Psoriasis

REACTIONS (2)
  - Drug intolerance [Unknown]
  - Therapy partial responder [Unknown]
